FAERS Safety Report 6269028-3 (Version None)
Quarter: 2009Q3

REPORT INFORMATION
  Report Type: 
  Country: None (occurrence: None)
  Receive Date: 20090715
  Receipt Date: 20090708
  Transmission Date: 20100115
  Serious: Yes (Other)
  Sender: FDA-Public Use
  Company Number: A0796951A

PATIENT
  Sex: Female

DRUGS (1)
  1. PAXIL [Suspect]
     Indication: DEPRESSION
     Dosage: 20MG PER DAY
     Route: 048
     Dates: start: 20090101, end: 20090501

REACTIONS (4)
  - ANGIOEDEMA [None]
  - FATIGUE [None]
  - OEDEMA PERIPHERAL [None]
  - RESPIRATORY DISORDER [None]
